FAERS Safety Report 4832475-8 (Version None)
Quarter: 2005Q4

REPORT INFORMATION
  Report Type: 
  Country: None (occurrence: None)
  Receive Date: 20051121
  Receipt Date: 20050928
  Transmission Date: 20060501
  Serious: No
  Sender: FDA-Public Use
  Company Number: US-BRISTOL-MYERS SQUIBB COMPANY-13126123

PATIENT
  Age: 40 Year
  Sex: Female

DRUGS (1)
  1. VEPESID [Suspect]

REACTIONS (2)
  - PRURITUS [None]
  - URTICARIA [None]
